FAERS Safety Report 5929264-X (Version None)
Quarter: 2008Q4

REPORT INFORMATION
  Report Type: 
  Country: None (occurrence: None)
  Receive Date: 20081021
  Receipt Date: 20081008
  Transmission Date: 20090506
  Serious: Yes (Other)
  Sender: FDA-Public Use
  Company Number: 20174

PATIENT
  Age: 57 Year
  Sex: Female
  Weight: 50 kg

DRUGS (7)
  1. PACLITAXEL [Suspect]
     Indication: MALIGNANT PERITONEAL NEOPLASM
     Dosage: 260 MG FREQ UNK IV
     Route: 042
     Dates: start: 20080709, end: 20080709
  2. PACLITAXEL [Suspect]
     Indication: MALIGNANT PERITONEAL NEOPLASM
     Dosage: 260 MG FREQ UNK IV
     Route: 042
     Dates: start: 20080730, end: 20080730
  3. CARBOPLATIN [Concomitant]
  4. SETIRITSINI [Concomitant]
  5. ONDANSETRON [Concomitant]
  6. RANITIDINI [Concomitant]
  7. DEXAMETASON [Concomitant]

REACTIONS (5)
  - ERYTHEMA [None]
  - HYPERHIDROSIS [None]
  - HYPERSENSITIVITY [None]
  - MALAISE [None]
  - VISUAL IMPAIRMENT [None]
